FAERS Safety Report 5635567-9 (Version None)
Quarter: 2008Q1

REPORT INFORMATION
  Report Type: 
  Country: None (occurrence: None)
  Receive Date: 20080222
  Receipt Date: 20080211
  Transmission Date: 20080703
  Serious: Yes (Other)
  Sender: FDA-Public Use
  Company Number: GB-PFIZER INC-2008015934

PATIENT
  Age: 64 Year
  Sex: Male

DRUGS (3)
  1. CHANTIX [Suspect]
     Indication: SMOKING CESSATION THERAPY
     Route: 048
     Dates: start: 20071001, end: 20080101
  2. ASPIRIN [Concomitant]
     Dosage: FREQ:DAILY
  3. ANTABUSE [Concomitant]
     Dosage: FREQ:DAILY

REACTIONS (4)
  - AGEUSIA [None]
  - ANOSMIA [None]
  - DRY MOUTH [None]
  - DYSGEUSIA [None]
